FAERS Safety Report 19736283 (Version 2)
Quarter: 2021Q4

REPORT INFORMATION
  Report Type: Spontaneous
  Country: US (occurrence: US)
  Receive Date: 20210824
  Receipt Date: 20211022
  Transmission Date: 20220303
  Serious: Yes (Other)
  Sender: FDA-Public Use
  Company Number: US-CELGENE-USA-20210806085

PATIENT
  Sex: Male

DRUGS (1)
  1. REVLIMID [Suspect]
     Active Substance: LENALIDOMIDE
     Indication: Plasma cell myeloma
     Dosage: 5 MILLIGRAM
     Route: 048
     Dates: start: 20171105

REACTIONS (4)
  - Pneumonia [Recovered/Resolved]
  - Nasal congestion [Recovered/Resolved]
  - Bronchitis [Recovered/Resolved]
  - Product dose omission issue [Recovered/Resolved]
